FAERS Safety Report 9892513 (Version 3)
Quarter: 2014Q2

REPORT INFORMATION
  Report Type: Spontaneous
  Country: IT (occurrence: IT)
  Receive Date: 20140212
  Receipt Date: 20140409
  Transmission Date: 20141212
  Serious: Yes (Hospitalization)
  Sender: FDA-Public Use
  Company Number: IT-ABBVIE-14P-083-1199575-00

PATIENT
  Age: 38 Year
  Sex: Male

DRUGS (7)
  1. DEPAKINE CHRONO [Suspect]
     Indication: INTENTIONAL SELF-INJURY
     Dosage: EXTENDED RELEASE
     Route: 048
  2. DEPAKINE CHRONO [Suspect]
     Indication: PRODUCT USED FOR UNKNOWN INDICATION
     Dosage: EXTENDED RELEASE, TOTAL
     Route: 048
     Dates: start: 20140126, end: 20140126
  3. LORAZEPAM [Suspect]
     Indication: INTENTIONAL SELF-INJURY
     Route: 048
  4. LORAZEPAM [Suspect]
     Indication: PRODUCT USED FOR UNKNOWN INDICATION
     Dosage: TOTAL
     Route: 048
     Dates: start: 20140126, end: 20140126
  5. ARIPIPRAZOLE [Concomitant]
     Indication: PRODUCT USED FOR UNKNOWN INDICATION
  6. LORMETAZEPAM [Concomitant]
     Indication: PRODUCT USED FOR UNKNOWN INDICATION
  7. ANTRA [Concomitant]
     Indication: PRODUCT USED FOR UNKNOWN INDICATION
     Route: 048

REACTIONS (4)
  - Intentional self-injury [Recovered/Resolved]
  - Hypotension [Recovered/Resolved]
  - Bradykinesia [Recovered/Resolved]
  - Sopor [Recovered/Resolved]
